FAERS Safety Report 14933005 (Version 2)
Quarter: 2018Q2

REPORT INFORMATION
  Report Type: Spontaneous
  Country: US (occurrence: US)
  Receive Date: 20180524
  Receipt Date: 20180626
  Transmission Date: 20180711
  Serious: No
  Sender: FDA-Public Use
  Company Number: US-PFIZER INC-2018212819

PATIENT
  Age: 11 Year
  Sex: Male

DRUGS (1)
  1. QUILLIVANT XR [Suspect]
     Active Substance: METHYLPHENIDATE HYDROCHLORIDE
     Indication: ATTENTION DEFICIT/HYPERACTIVITY DISORDER
     Dosage: 6 TO 8 ML, IN THE MORNING
     Route: 048

REACTIONS (4)
  - Product physical consistency issue [Unknown]
  - Expired product administered [Unknown]
  - Drug ineffective [Unknown]
  - Poor quality drug administered [Unknown]
